FAERS Safety Report 5894702-8 (Version None)
Quarter: 2008Q3

REPORT INFORMATION
  Report Type: 
  Country: None (occurrence: None)
  Receive Date: 20080924
  Receipt Date: 20080512
  Transmission Date: 20090109
  Serious: No
  Sender: FDA-Public Use
  Company Number: US-ASTRAZENECA-2008UW09637

PATIENT
  Sex: Female

DRUGS (3)
  1. SEROQUEL [Suspect]
     Indication: SLEEP DISORDER
     Route: 048
  2. TOPROL-XL [Concomitant]
  3. NEXIUM [Concomitant]

REACTIONS (2)
  - BLOOD SODIUM DECREASED [None]
  - CONSTIPATION [None]
